FAERS Safety Report 6203312-4 (Version None)
Quarter: 2009Q2

REPORT INFORMATION
  Report Type: 
  Country: None (occurrence: None)
  Receive Date: 20090527
  Receipt Date: 20090525
  Transmission Date: 20091009
  Serious: Yes (Death, Life-Threatening, Hospitalization)
  Sender: FDA-Public Use
  Company Number: PHHY2009JP13227

PATIENT
  Age: 55 Year
  Sex: Female

DRUGS (2)
  1. LUDIOMIL [Suspect]
     Indication: DEPRESSION
     Dosage: UNK
     Route: 048
  2. DRUG THERAPY NOS [Suspect]

REACTIONS (4)
  - CARDIO-RESPIRATORY ARREST [None]
  - COMPLETED SUICIDE [None]
  - ENCEPHALOPATHY [None]
  - LOSS OF CONSCIOUSNESS [None]
